FAERS Safety Report 14949558 (Version 1)
Quarter: 2018Q2

REPORT INFORMATION
  Report Type: Spontaneous
  Country: US (occurrence: US)
  Receive Date: 20180529
  Receipt Date: 20180529
  Transmission Date: 20180711
  Serious: No
  Sender: FDA-Public Use
  Company Number: US-009507513-1805USA012421

PATIENT
  Sex: Female

DRUGS (1)
  1. NEXPLANON [Suspect]
     Active Substance: ETONOGESTREL
     Indication: CONTRACEPTION
     Dosage: 1 ROD (NON DOMINANT ARM)
     Route: 059
     Dates: start: 20180517

REACTIONS (2)
  - Implant site hypersensitivity [Not Recovered/Not Resolved]
  - Implant site cellulitis [Not Recovered/Not Resolved]

NARRATIVE: CASE EVENT DATE: 20180524
